FAERS Safety Report 9721673 (Version 2)
Quarter: 2014Q1

REPORT INFORMATION
  Report Type: Spontaneous
  Country: US (occurrence: US)
  Receive Date: 20131201
  Receipt Date: 20140228
  Transmission Date: 20141002
  Serious: No
  Sender: FDA-Public Use
  Company Number: US-ABBVIE-13P-163-1169911-00

PATIENT
  Age: 56 Year
  Sex: Male
  Weight: 93.07 kg

DRUGS (5)
  1. ANDROGEL [Suspect]
     Indication: BLOOD TESTOSTERONE DECREASED
     Route: 061
     Dates: start: 201307, end: 201311
  2. ANDROGEL [Suspect]
     Route: 061
     Dates: start: 201311
  3. SIMVASTATIN [Concomitant]
     Indication: BLOOD CHOLESTEROL INCREASED
  4. HYDROCHLOROTHIAZIDE [Concomitant]
     Indication: HYPERTENSION
  5. BENAZEPRIL HCL [Concomitant]
     Indication: HYPERTENSION

REACTIONS (3)
  - Drug administered at inappropriate site [Unknown]
  - Drug administered at inappropriate site [Unknown]
  - Drug ineffective [Unknown]
